FAERS Safety Report 8037978-3 (Version None)
Quarter: 2012Q1

REPORT INFORMATION
  Report Type: 
  Country: None (occurrence: None)
  Receive Date: 20120111
  Receipt Date: 20120105
  Transmission Date: 20120608
  Serious: Yes (Other)
  Sender: FDA-Public Use
  Company Number: US-PFIZER INC-2011053965

PATIENT
  Sex: Male
  Weight: 88.435 kg

DRUGS (12)
  1. CELEBREX [Suspect]
     Indication: ARTHRALGIA
     Dosage: 200 MG, 1X/DAY
     Route: 048
     Dates: start: 20101101
  2. ACETAMINOPHEN [Concomitant]
     Indication: PAIN
     Dosage: 1300 MG, DAILY
     Route: 048
  3. ZIAC [Concomitant]
     Indication: HYPERTENSION
     Dosage: 2.5 MG
  4. ZOCOR [Concomitant]
     Indication: BLOOD CHOLESTEROL INCREASED
     Dosage: 10 MG, 1X/DAY
     Route: 048
  5. CELEBREX [Suspect]
     Dosage: 200 MG, DAILY
     Route: 048
     Dates: start: 20110101
  6. HYTRIN [Concomitant]
     Indication: HYPERTENSION
     Dosage: 5 MG, 1X/DAY
  7. VITAMIN E [Concomitant]
     Dosage: UNK
  8. ACETAMINOPHEN [Concomitant]
     Indication: ARTHRALGIA
  9. PROSCAR [Concomitant]
     Indication: PROSTATIC DISORDER
     Dosage: 5 MG, 1X/DAY
     Route: 048
  10. ACETYLSALICYLIC ACID SRT [Suspect]
     Dosage: UNK
  11. PAXIL [Concomitant]
     Indication: DEPRESSION
     Dosage: 20 MG, 1X/DAY
     Route: 048
  12. FISH OIL [Concomitant]
     Dosage: UNK

REACTIONS (2)
  - DRUG INEFFECTIVE [None]
  - HAEMORRHAGE [None]
